FAERS Safety Report 9269558 (Version 1)
Quarter: 2013Q2

REPORT INFORMATION
  Report Type: Spontaneous
  Country: FR (occurrence: FR)
  Receive Date: 20130503
  Receipt Date: 20130503
  Transmission Date: 20140414
  Serious: Yes (Other)
  Sender: FDA-Public Use
  Company Number: FR-ELI_LILLY_AND_COMPANY-FR201304006168

PATIENT
  Age: 86 Year
  Sex: Male

DRUGS (12)
  1. CYMBALTA [Suspect]
     Dosage: 60 MG, QD
     Route: 048
     Dates: start: 201212, end: 20130301
  2. KARDEGIC [Concomitant]
     Dosage: 75 MG, QD
  3. PARIET [Concomitant]
     Dosage: 10 MG, QD
  4. FORLAX [Concomitant]
     Dosage: UNK
  5. IKOREL [Concomitant]
     Dosage: 20 MG, QD
  6. MECIR [Concomitant]
     Dosage: 0.4 MG, QD
  7. APROVEL [Concomitant]
     Dosage: 300 MG, QD
  8. DIGOXINE NATIVELLE [Concomitant]
     Dosage: UNK
  9. LASILIX [Concomitant]
     Dosage: 60 MG, QD
  10. INSULATARD [Concomitant]
     Dosage: UNK
  11. NOVORAPID [Concomitant]
     Dosage: UNK
  12. FRAGMINE [Concomitant]
     Dosage: UNK

REACTIONS (4)
  - Brief psychotic disorder with marked stressors [Recovered/Resolved]
  - Delusion [Recovered/Resolved]
  - Hallucination [Recovered/Resolved]
  - Aggression [Recovered/Resolved]
